FAERS Safety Report 22246057 (Version 1)
Quarter: 2023Q2

REPORT INFORMATION
  Report Type: Spontaneous
  Country: US (occurrence: US)
  Receive Date: 20230424
  Receipt Date: 20230424
  Transmission Date: 20230721
  Serious: Yes (Hospitalization, Other)
  Sender: FDA-Public Use
  Company Number: US-TRIS PHARMA, INC.-23US010824

PATIENT

DRUGS (2)
  1. QUILLIVANT XR [Suspect]
     Active Substance: METHYLPHENIDATE HYDROCHLORIDE
     Indication: Attention deficit hyperactivity disorder
     Dosage: 15 MILLIGRAM, QD
     Route: 048
     Dates: start: 202212
  2. FENFLURAMINE [Concomitant]
     Active Substance: FENFLURAMINE
     Indication: Epilepsy
     Dosage: UNK
     Route: 048

REACTIONS (1)
  - Epilepsy [Not Recovered/Not Resolved]
